FAERS Safety Report 8542602-7 (Version None)
Quarter: 2012Q3

REPORT INFORMATION
  Report Type: 
  Country: None (occurrence: None)
  Receive Date: 20120726
  Receipt Date: 20120629
  Transmission Date: 20120928
  Serious: Yes (Other)
  Sender: FDA-Public Use
  Company Number: GB-009507513-1203GBR00020

PATIENT

DRUGS (3)
  1. SINGULAIR [Suspect]
     Indication: ASTHMA
     Dosage: 4 MG, UNK
     Route: 048
     Dates: start: 20100101, end: 20110101
  2. LEVETIRACETAM [Concomitant]
     Indication: EPILEPSY
     Dosage: 340 MG, BID
  3. VALPROATE SODIUM [Concomitant]
     Indication: EPILEPSY
     Dosage: 200 MG, BID
     Dates: end: 20120201

REACTIONS (1)
  - CONVULSION [None]
